FAERS Safety Report 12912808 (Version 3)
Quarter: 2018Q3

REPORT INFORMATION
  Report Type: Report from Study
  Country: US (occurrence: US)
  Receive Date: 20161104
  Receipt Date: 20180921
  Transmission Date: 20181010
  Serious: Yes (Hospitalization)
  Sender: FDA-Public Use
  Company Number: US-EISAI MEDICAL RESEARCH-EC-2015-010590

PATIENT
  Age: 70 Year
  Sex: Male
  Weight: 97.5 kg

DRUGS (26)
  1. TAMSULOSIN HCL [Concomitant]
     Active Substance: TAMSULOSIN HYDROCHLORIDE
  2. PREDNISONE. [Concomitant]
     Active Substance: PREDNISONE
  3. LENVIMA [Suspect]
     Active Substance: LENVATINIB
     Indication: THYROID CANCER
     Route: 048
     Dates: start: 20150917, end: 20150923
  4. MULTIVITAMINS [Concomitant]
     Active Substance: VITAMINS
  5. LENVIMA [Suspect]
     Active Substance: LENVATINIB
     Route: 048
     Dates: start: 2016, end: 201609
  6. LISINOPRIL. [Concomitant]
     Active Substance: LISINOPRIL
  7. LENVIMA [Suspect]
     Active Substance: LENVATINIB
     Route: 048
     Dates: start: 2018
  8. ACIDOPHILUS [Concomitant]
     Active Substance: LACTOBACILLUS ACIDOPHILUS
  9. STOOL SOFTENER (DOCUSATE) [Concomitant]
     Active Substance: DOCUSATE
  10. LENVIMA [Suspect]
     Active Substance: LENVATINIB
     Dosage: LOWER DOSE
     Route: 048
     Dates: start: 201806, end: 201806
  11. AMLODIPINE BESYLATE. [Concomitant]
     Active Substance: AMLODIPINE BESYLATE
  12. TUMS [Concomitant]
     Active Substance: CALCIUM CARBONATE
  13. OMEGA 3 [Concomitant]
     Active Substance: OMEGA-3 FATTY ACIDS
  14. CALCIUM [Concomitant]
     Active Substance: CALCIUM
  15. OMEPRAZOLE. [Concomitant]
     Active Substance: OMEPRAZOLE
  16. LOSARTAN POTASSIUM. [Concomitant]
     Active Substance: LOSARTAN POTASSIUM
  17. AVAPRO [Concomitant]
     Active Substance: IRBESARTAN
  18. ZITHROMAX [Concomitant]
     Active Substance: AZITHROMYCIN DIHYDRATE
  19. LENVIMA [Suspect]
     Active Substance: LENVATINIB
     Route: 048
     Dates: start: 2018, end: 2018
  20. VITAMIN D3 [Concomitant]
     Active Substance: CHOLECALCIFEROL
  21. LEVAQUIN [Concomitant]
     Active Substance: LEVOFLOXACIN
  22. LENVIMA [Suspect]
     Active Substance: LENVATINIB
     Route: 048
     Dates: start: 201512, end: 2016
  23. SYNTHROID [Concomitant]
     Active Substance: LEVOTHYROXINE SODIUM
  24. ZOFRAN [Concomitant]
     Active Substance: ONDANSETRON HYDROCHLORIDE
  25. TYLENOL [Concomitant]
     Active Substance: ACETAMINOPHEN
  26. LAXATIVE [Concomitant]
     Active Substance: UNSPECIFIED INGREDIENT

REACTIONS (30)
  - Headache [Not Recovered/Not Resolved]
  - Somnolence [Unknown]
  - Ageusia [Unknown]
  - Weight decreased [Unknown]
  - Balance disorder [Unknown]
  - Malignant neoplasm progression [Unknown]
  - Constipation [Unknown]
  - Sneezing [Unknown]
  - Diarrhoea [Unknown]
  - Ear swelling [Unknown]
  - Rhinorrhoea [Unknown]
  - Dry mouth [Not Recovered/Not Resolved]
  - Dry eye [Not Recovered/Not Resolved]
  - Dysphonia [Not Recovered/Not Resolved]
  - Blood pressure fluctuation [Not Recovered/Not Resolved]
  - Dizziness [Unknown]
  - Dysgeusia [Unknown]
  - Cough [Not Recovered/Not Resolved]
  - Pneumonitis [Not Recovered/Not Resolved]
  - Nasal congestion [Not Recovered/Not Resolved]
  - Fatigue [Unknown]
  - Acne [Unknown]
  - Tooth extraction [Not Recovered/Not Resolved]
  - Oropharyngeal pain [Unknown]
  - Myalgia [Not Recovered/Not Resolved]
  - Decreased appetite [Unknown]
  - Hypertension [Not Recovered/Not Resolved]
  - Dysphonia [Not Recovered/Not Resolved]
  - Pruritus [Unknown]
  - Productive cough [Not Recovered/Not Resolved]

NARRATIVE: CASE EVENT DATE: 2015
